FAERS Safety Report 7534311-8 (Version None)
Quarter: 2011Q2

REPORT INFORMATION
  Report Type: 
  Country: None (occurrence: None)
  Receive Date: 20110608
  Receipt Date: 20110525
  Transmission Date: 20111010
  Serious: Yes (Life-Threatening)
  Sender: FDA-Public Use
  Company Number: CH-GENENTECH-319654

PATIENT
  Age: 84 Year
  Sex: Male
  Weight: 75 kg

DRUGS (2)
  1. LUCENTIS [Suspect]
     Dosage: 0.05 ML, Q4W
     Route: 031
     Dates: start: 20110222
  2. LUCENTIS [Suspect]
     Indication: MACULAR DEGENERATION
     Dosage: 0.05 ML, 1/MONTH
     Route: 031
     Dates: start: 20110222

REACTIONS (4)
  - EOSINOPHILIA [None]
  - RENAL ARTERIOSCLEROSIS [None]
  - TUBULOINTERSTITIAL NEPHRITIS [None]
  - RENAL FAILURE [None]
